FAERS Safety Report 7177169-1 (Version None)
Quarter: 2010Q4

REPORT INFORMATION
  Report Type: 
  Country: None (occurrence: None)
  Receive Date: 20101207
  Receipt Date: 20101201
  Transmission Date: 20110411
  Serious: Yes (Life-Threatening)
  Sender: FDA-Public Use
  Company Number: 0215221

PATIENT
  Age: 53 Year
  Sex: Male

DRUGS (1)
  1. TACHOSIL [Suspect]
     Indication: HAEMOSTASIS
     Dosage: 2 TOPICAL PREPARATION;
     Dates: start: 20101115

REACTIONS (1)
  - LIVER ABSCESS [None]
